FAERS Safety Report 9314354 (Version 2)
Quarter: 2014Q1

REPORT INFORMATION
  Report Type: Report from Study
  Country: CA (occurrence: CA)
  Receive Date: 20130529
  Receipt Date: 20140107
  Transmission Date: 20141002
  Serious: Yes (Death, Other)
  Sender: FDA-Public Use
  Company Number: CA-ROCHE-1228857

PATIENT
  Sex: 0

DRUGS (8)
  1. RITUXIMAB [Suspect]
     Indication: B-CELL LYMPHOMA
     Route: 065
  2. INOTUZUMAB OZOGAMICIN [Suspect]
     Indication: B-CELL LYMPHOMA
     Dosage: DAY 2
     Route: 065
  3. GEMCITABINE [Suspect]
     Indication: B-CELL LYMPHOMA
     Route: 065
  4. GEMCITABINE [Suspect]
     Dosage: DOSE ESCALATION
     Route: 065
  5. DEXAMETHASONE [Suspect]
     Indication: B-CELL LYMPHOMA
     Dosage: DAY 1-4
     Route: 065
  6. CISPLATIN [Suspect]
     Indication: B-CELL LYMPHOMA
     Route: 065
  7. CISPLATIN [Suspect]
     Dosage: DOSE ESCALATION
     Route: 065
  8. CISPLATIN [Suspect]
     Route: 065

REACTIONS (11)
  - Oesophageal obstruction [Fatal]
  - Tumour lysis syndrome [Unknown]
  - Neutropenic sepsis [Unknown]
  - Febrile neutropenia [Unknown]
  - Hypokalaemia [Unknown]
  - Thrombocytopenia [Unknown]
  - Lymphopenia [Unknown]
  - Anaemia [Unknown]
  - Leukopenia [Unknown]
  - Fatigue [Unknown]
  - Neutropenia [Unknown]
